FAERS Safety Report 7003490-3 (Version None)
Quarter: 2010Q3

REPORT INFORMATION
  Report Type: 
  Country: None (occurrence: None)
  Receive Date: 20100916
  Receipt Date: 20100908
  Transmission Date: 20110219
  Serious: Yes (Other)
  Sender: FDA-Public Use
  Company Number: 1000016045

PATIENT
  Sex: Female
  Weight: 2.57 kg

DRUGS (2)
  1. ESCITALOPRAM [Suspect]
     Indication: PSYCHOTIC DISORDER
     Dosage: 10 MG 910 MG, 1 IN 1 D), TRANSPLACENTAL
     Route: 064
  2. INVEGA [Suspect]
     Dosage: 9 MG, TRANSPLACENTAL
     Route: 064

REACTIONS (4)
  - BRADYPNOEA [None]
  - DRUG WITHDRAWAL SYNDROME NEONATAL [None]
  - HYPOTONIA NEONATAL [None]
  - MATERNAL DRUGS AFFECTING FOETUS [None]
